FAERS Safety Report 9199750 (Version 1)
Quarter: 2013Q1

REPORT INFORMATION
  Report Type: Spontaneous
  Country: US (occurrence: None)
  Receive Date: 20130326
  Receipt Date: 20130326
  Transmission Date: 20140127
  Serious: Yes (Other)
  Sender: FDA-Public Use
  Company Number: JPI-P-030644

PATIENT
  Sex: Female

DRUGS (1)
  1. XYREM [Suspect]
     Indication: PRODUCT USED FOR UNKNOWN INDICATION
     Route: 048

REACTIONS (8)
  - Drug abuse [None]
  - Drug withdrawal syndrome [None]
  - Loss of consciousness [None]
  - Road traffic accident [None]
  - Irritability [None]
  - Convulsion [None]
  - Paranoia [None]
  - Hypersomnia [None]
